FAERS Safety Report 5756614-X (Version None)
Quarter: 2008Q2

REPORT INFORMATION
  Report Type: 
  Country: None (occurrence: None)
  Receive Date: 20080603
  Receipt Date: 20080603
  Transmission Date: 20081010
  Serious: Yes (Hospitalization, Other)
  Sender: FDA-Public Use
  Company Number: None

PATIENT
  Age: 62 Year
  Sex: Female
  Weight: 38.5557 kg

DRUGS (3)
  1. HEPARIN [Suspect]
     Indication: CENTRAL VENOUS CATHETERISATION
     Dosage: 100 UNITS/ML EVERDAY IV
     Route: 042
     Dates: start: 20060901, end: 20080602
  2. HEPARIN [Suspect]
     Indication: PARENTERAL NUTRITION
     Dosage: 100 UNITS/ML EVERDAY IV
     Route: 042
     Dates: start: 20060901, end: 20080602
  3. HEPARIN [Suspect]

REACTIONS (5)
  - GENERAL PHYSICAL HEALTH DETERIORATION [None]
  - INFECTION [None]
  - PHARMACEUTICAL PRODUCT COMPLAINT [None]
  - THERAPEUTIC PRODUCT CONTAMINATION [None]
  - URINARY TRACT INFECTION [None]
